FAERS Safety Report 8207907-8 (Version None)
Quarter: 2012Q1

REPORT INFORMATION
  Report Type: 
  Country: None (occurrence: None)
  Receive Date: 20120314
  Receipt Date: 20120305
  Transmission Date: 20120608
  Serious: Yes (Hospitalization, Other)
  Sender: FDA-Public Use
  Company Number: DE-ASTRAZENECA-2012SE15142

PATIENT
  Age: 35 Year
  Sex: Female
  Weight: 85 kg

DRUGS (7)
  1. SEROQUEL [Suspect]
     Indication: DEPRESSION
     Route: 048
     Dates: start: 20100825, end: 20110404
  2. CITALOPRAM [Concomitant]
     Indication: DEPRESSION
     Dosage: 40 MG DAILY UNTIL GESTATIONAL WEEK 10
     Route: 048
  3. ACTRAPID [Concomitant]
     Indication: GESTATIONAL DIABETES
     Route: 058
     Dates: end: 20110404
  4. INSIDON [Suspect]
     Indication: DEPRESSION
     Dosage: 100 MG DAILY UNTIL GESTATION WEEK 10
     Route: 048
  5. VALDOXAN [Suspect]
     Indication: DEPRESSION
     Route: 048
     Dates: start: 20090601, end: 20110404
  6. ORTHOMOL NATAL [Concomitant]
     Indication: PROPHYLAXIS OF NEURAL TUBE DEFECT
     Route: 048
     Dates: end: 20110404
  7. PRESINOL [Concomitant]
     Indication: PRE-ECLAMPSIA
     Route: 048
     Dates: end: 20110404

REACTIONS (6)
  - GESTATIONAL DIABETES [None]
  - PREGNANCY [None]
  - PRE-ECLAMPSIA [None]
  - PREMATURE DELIVERY [None]
  - CAESAREAN SECTION [None]
  - MATERNAL EXPOSURE DURING PREGNANCY [None]
